FAERS Safety Report 8309401-2 (Version None)
Quarter: 2012Q2

REPORT INFORMATION
  Report Type: 
  Country: None (occurrence: None)
  Receive Date: 20120420
  Receipt Date: 20120406
  Transmission Date: 20120825
  Serious: Yes (Other)
  Sender: FDA-Public Use
  Company Number: 2012AP000975

PATIENT

DRUGS (2)
  1. PAROXETINE HYDROCHLORIDE [Suspect]
     Indication: PRODUCT USED FOR UNKNOWN INDICATION
  2. PAROXETINE HCL [Concomitant]

REACTIONS (7)
  - NAUSEA [None]
  - THINKING ABNORMAL [None]
  - TONGUE DISORDER [None]
  - CRYING [None]
  - BALANCE DISORDER [None]
  - ABNORMAL DREAMS [None]
  - PANIC ATTACK [None]
